FAERS Safety Report 7820011-3 (Version None)
Quarter: 2011Q4

REPORT INFORMATION
  Report Type: 
  Country: None (occurrence: None)
  Receive Date: 20111018
  Receipt Date: 20111011
  Transmission Date: 20120403
  Serious: Yes (Hospitalization, Other)
  Sender: FDA-Public Use
  Company Number: PHHY2011JP79969

PATIENT
  Sex: Male
  Weight: 55 kg

DRUGS (7)
  1. ENTACAPONE [Suspect]
     Dosage: 200 MG, DAILY
     Route: 048
     Dates: start: 20100817
  2. CABERGOLINE [Concomitant]
     Dosage: 2 MG, UNK
     Route: 048
  3. CABERGOLINE [Concomitant]
     Indication: PARKINSON'S DISEASE
     Dosage: 3 MG, UNK
     Route: 048
     Dates: start: 20081002
  4. DOPS [Concomitant]
     Indication: PARKINSON'S DISEASE
     Dosage: 400 MG, UNK
     Route: 048
     Dates: start: 20081002
  5. CARBIDOPA + LEVODOPA [Concomitant]
     Indication: PARKINSON'S DISEASE
     Dosage: 300 MG, UNK
     Route: 048
     Dates: start: 20081002
  6. ENTACAPONE [Suspect]
     Indication: PARKINSON'S DISEASE
     Dosage: 400 MG, DAILY
     Route: 048
     Dates: start: 20090721, end: 20100816
  7. MAGNESIUM SULFATE [Concomitant]
     Dosage: 1000 MG, UNK
     Route: 048

REACTIONS (3)
  - BLOOD ALKALINE PHOSPHATASE INCREASED [None]
  - ILEUS [None]
  - DIVERTICULITIS [None]
